FAERS Safety Report 6907226-3 (Version None)
Quarter: 2010Q3

REPORT INFORMATION
  Report Type: 
  Country: None (occurrence: None)
  Receive Date: 20100802
  Receipt Date: 20100720
  Transmission Date: 20110219
  Serious: Yes (Hospitalization, Other)
  Sender: FDA-Public Use
  Company Number: BR-001162

PATIENT
  Sex: Female
  Weight: 21.5 kg

DRUGS (3)
  1. NAGLAZYME [Suspect]
     Dosage: (4 VIALS INTRAVENOUS DRIP), (20 MG  1X/WEEK INTRAVENOUS DRIP)
     Route: 041
     Dates: start: 20100720, end: 20100720
  2. NAGLAZYME [Suspect]
     Dosage: (4 VIALS INTRAVENOUS DRIP), (20 MG  1X/WEEK INTRAVENOUS DRIP)
     Route: 041
     Dates: start: 20100519
  3. POLARAMINE /00072502/ [Concomitant]

REACTIONS (5)
  - ERYTHEMA [None]
  - HYPERTENSION [None]
  - INFUSION RELATED REACTION [None]
  - PRURITUS [None]
  - RASH [None]
